FAERS Safety Report 5128020-2 (Version None)
Quarter: 2006Q4

REPORT INFORMATION
  Report Type: 
  Country: None (occurrence: None)
  Receive Date: 20061013
  Receipt Date: 20061013
  Transmission Date: 20070319
  Serious: Yes (Hospitalization)
  Sender: FDA-Public Use
  Company Number: None

PATIENT
  Age: 74 Year
  Sex: Male
  Weight: 95.2554 kg

DRUGS (11)
  1. PRAMIPEXOLE DIHYDROCHLORIDE [Suspect]
     Indication: PARKINSON'S DISEASE
     Dosage: .25 MG TID PO
     Route: 048
     Dates: start: 20060825, end: 20061003
  2. LISINOPRIL [Concomitant]
  3. DICLOFENAC [Concomitant]
  4. GALANTAMINE HYDROBROMIDE [Concomitant]
  5. HYDROCHLOROTHIAZIDE [Concomitant]
  6. METOCARBAMOL [Concomitant]
  7. PANTOPRAZOLE SODIUM [Concomitant]
  8. SIMVASTATIN [Concomitant]
  9. RISPERIDONE [Concomitant]
  10. SERTRALINE [Concomitant]
  11. GABAPENTIN [Concomitant]

REACTIONS (12)
  - CONFUSIONAL STATE [None]
  - COUGH [None]
  - DYSARTHRIA [None]
  - DYSPHAGIA [None]
  - FATIGUE [None]
  - FLUID INTAKE REDUCED [None]
  - HALLUCINATION, AUDITORY [None]
  - HALLUCINATION, VISUAL [None]
  - HYPOTENSION [None]
  - MUSCULAR WEAKNESS [None]
  - ORAL INTAKE REDUCED [None]
  - URINARY INCONTINENCE [None]
